FAERS Safety Report 7999644 (Version 3)
Quarter: 2013Q4

REPORT INFORMATION
  Report Type: Report from Study
  Country: HU (occurrence: HU)
  Receive Date: 20110620
  Receipt Date: 20131115
  Transmission Date: 20140711
  Serious: Yes (Hospitalization)
  Sender: FDA-Public Use
  Company Number: PHHO2011HU08606

PATIENT
  Age: 6 Year
  Sex: Female
  Weight: 22 kg

DRUGS (13)
  1. BLINDED NO TREATMENT RECEIVED [Suspect]
     Indication: CYSTIC FIBROSIS
     Dosage: CODE NOT BROKEN
     Dates: start: 20101004
  2. BLINDED PLACEBO [Suspect]
     Indication: CYSTIC FIBROSIS
     Dosage: CODE NOT BROKEN
     Dates: start: 20101004
  3. BLINDED TOBRAMYCIN INHALATION POWDER [Suspect]
     Indication: CYSTIC FIBROSIS
     Dosage: CODE NOT BROKEN
     Dates: start: 20101004
  4. BLINDED NO TREATMENT RECEIVED [Suspect]
     Indication: PSEUDOMONAS INFECTION
  5. BLINDED PLACEBO [Suspect]
     Indication: PSEUDOMONAS INFECTION
  6. BLINDED TOBRAMYCIN INHALATION POWDER [Suspect]
     Indication: PSEUDOMONAS INFECTION
  7. ACETYLCYSTEINE [Concomitant]
     Indication: CARDIAC FAILURE
     Dosage: 200 MG, TID
     Route: 048
     Dates: start: 20050211
  8. CREON [Concomitant]
     Indication: CARDIAC FAILURE
     Dosage: 7.5 IU, UNK
     Dates: start: 20041210
  9. PULMICORT [Concomitant]
     Indication: CARDIAC FAILURE
     Dosage: 200 MG, BID
     Dates: start: 20090109
  10. PULMICORT [Concomitant]
     Indication: ASTHMA
  11. MONTELUKAST [Concomitant]
     Indication: CARDIAC FAILURE
     Dosage: 4 MG, UNK
     Route: 048
     Dates: start: 20090109
  12. MONTELUKAST [Concomitant]
     Indication: ASTHMA
  13. AMBROXOL [Concomitant]
     Indication: CARDIAC FAILURE
     Dosage: 4 ML, BID
     Route: 048

REACTIONS (2)
  - Infective pulmonary exacerbation of cystic fibrosis [Recovered/Resolved]
  - Bronchopneumonia [Recovered/Resolved]
